FAERS Safety Report 9913615 (Version 1)
Quarter: 2014Q1

REPORT INFORMATION
  Report Type: Spontaneous
  Country: US (occurrence: None)
  Receive Date: 20140218
  Receipt Date: 20140218
  Transmission Date: 20141002
  Serious: Yes (Life-Threatening)
  Sender: FDA-Public Use
  Company Number: None

PATIENT
  Age: 52 Year
  Sex: Female
  Weight: 77.7 kg

DRUGS (2)
  1. VENLAFAXINE [Suspect]
     Indication: HOT FLUSH
     Dates: start: 201309, end: 201402
  2. VENLAFAXINE [Suspect]
     Indication: MENOPAUSAL SYMPTOMS
     Dates: start: 201309, end: 201402

REACTIONS (6)
  - Hepatic enzyme increased [None]
  - Hyperhidrosis [None]
  - Asthenia [None]
  - Irritability [None]
  - Insomnia [None]
  - Anxiety [None]
